FAERS Safety Report 5756594-7 (Version None)
Quarter: 2008Q2

REPORT INFORMATION
  Report Type: 
  Country: None (occurrence: None)
  Receive Date: 20080528
  Receipt Date: 20080515
  Transmission Date: 20081010
  Serious: No
  Sender: FDA-Public Use
  Company Number: US023540

PATIENT
  Sex: Female

DRUGS (3)
  1. FENTORA [Suspect]
     Indication: BACK PAIN
     Dosage: 800 UG   BUCCAL
     Route: 002
  2. FENTORA [Suspect]
     Indication: NECK PAIN
     Dosage: 800 UG   BUCCAL
     Route: 002
  3. NORCO [Concomitant]

REACTIONS (1)
  - DRUG PRESCRIBING ERROR [None]
